FAERS Safety Report 8989773 (Version 1)
Quarter: 2012Q4

REPORT INFORMATION
  Report Type: 
  Country: US (occurrence: US)
  Receive Date: 20121228
  Receipt Date: 20121228
  Transmission Date: 20130627
  Serious: Yes (Other)
  Sender: FDA-Public Use
  Company Number: US-FRI-1000041263

PATIENT
  Age: 58 Year
  Sex: Male

DRUGS (12)
  1. SAVELLA [Suspect]
     Indication: PAIN
     Dosage: 12.5 MG
     Route: 048
     Dates: start: 20121219
  2. GLIPIZIDE [Concomitant]
     Indication: DIABETES MELLITUS
  3. METFORMIN [Concomitant]
     Indication: DIABETES MELLITUS
  4. POTASSIUM [Concomitant]
  5. NEURONTIN [Concomitant]
  6. LASIX [Concomitant]
  7. SIMVASTATIN [Concomitant]
     Indication: BLOOD CHOLESTEROL INCREASED
  8. DIGOXIN [Concomitant]
  9. CAPOTEN [Concomitant]
  10. BENAZEPRIL [Concomitant]
  11. WARFARIN [Concomitant]
  12. LORTAB [Concomitant]

REACTIONS (2)
  - Cardiac flutter [Not Recovered/Not Resolved]
  - Off label use [Not Recovered/Not Resolved]
